FAERS Safety Report 17003697 (Version 1)
Quarter: 2019Q4

REPORT INFORMATION
  Report Type: Spontaneous
  Country: US (occurrence: US)
  Receive Date: 20191107
  Receipt Date: 20191107
  Transmission Date: 20200122
  Serious: Yes (Life-Threatening, Hospitalization, Other)
  Sender: FDA-Public Use
  Company Number: US-ACCORD-160230

PATIENT
  Age: 71 Year
  Sex: Male

DRUGS (8)
  1. DEXAMETHASONE. [Concomitant]
     Active Substance: DEXAMETHASONE
     Indication: HUMAN ANAPLASMOSIS
     Route: 042
  2. ETOPOSIDE. [Suspect]
     Active Substance: ETOPOSIDE
     Indication: HUMAN ANAPLASMOSIS
  3. ATOVAQUONE. [Concomitant]
     Active Substance: ATOVAQUONE
     Indication: HUMAN ANAPLASMOSIS
  4. AZITHROMYCIN ANHYDROUS. [Concomitant]
     Active Substance: AZITHROMYCIN ANHYDROUS
     Indication: HUMAN ANAPLASMOSIS
  5. NOREPINEPHRINE. [Concomitant]
     Active Substance: NOREPINEPHRINE
     Indication: SHOCK
  6. DOXYCYCLINE. [Concomitant]
     Active Substance: DOXYCYCLINE
     Indication: HUMAN ANAPLASMOSIS
  7. FLUCONAZOLE. [Concomitant]
     Active Substance: FLUCONAZOLE
     Indication: HUMAN ANAPLASMOSIS
  8. MEROPENEM. [Concomitant]
     Active Substance: MEROPENEM
     Indication: HUMAN ANAPLASMOSIS

REACTIONS (2)
  - Off label use [Unknown]
  - Renal failure [Unknown]
